FAERS Safety Report 9714287 (Version 3)
Quarter: 2015Q3

REPORT INFORMATION
  Report Type: Spontaneous
  Country: US (occurrence: US)
  Receive Date: 20131126
  Receipt Date: 20150803
  Transmission Date: 20151125
  Serious: No
  Sender: FDA-Public Use
  Company Number: US-GILEAD-2008-0019337

PATIENT
  Age: 79 Year
  Sex: Female

DRUGS (15)
  1. WARFARIN [Concomitant]
     Active Substance: WARFARIN
  2. BENICAR [Concomitant]
     Active Substance: OLMESARTAN MEDOXOMIL
  3. SPIRIVA [Concomitant]
     Active Substance: TIOTROPIUM BROMIDE MONOHYDRATE
  4. OSCAL [Concomitant]
     Active Substance: CALCIUM CARBONATE
  5. LETAIRIS [Suspect]
     Active Substance: AMBRISENTAN
     Indication: PULMONARY ARTERIAL HYPERTENSION
     Route: 048
     Dates: start: 20080815
  6. VITAMIN C [Concomitant]
     Active Substance: ASCORBIC ACID
  7. VITAMIN E [Concomitant]
     Active Substance: .ALPHA.-TOCOPHEROL
  8. FISH OIL [Concomitant]
     Active Substance: FISH OIL
  9. OXYGEN. [Concomitant]
     Active Substance: OXYGEN
  10. CRESTOR [Concomitant]
     Active Substance: ROSUVASTATIN CALCIUM
  11. VALIUM [Concomitant]
     Active Substance: DIAZEPAM
  12. ACTONEL [Concomitant]
     Active Substance: RISEDRONATE SODIUM
  13. LETAIRIS [Suspect]
     Active Substance: AMBRISENTAN
     Dates: start: 20080925, end: 20081202
  14. VITAMIN B [Concomitant]
     Active Substance: VITAMIN B
  15. FLAXSEED [Concomitant]
     Active Substance: FLAX SEED

REACTIONS (3)
  - Blood count abnormal [Unknown]
  - Drug ineffective [Unknown]
  - Nasal congestion [Unknown]

NARRATIVE: CASE EVENT DATE: 20081029
